FAERS Safety Report 20614452 (Version 19)
Quarter: 2024Q1

REPORT INFORMATION
  Report Type: Report from Study
  Country: US (occurrence: US)
  Receive Date: 20220321
  Receipt Date: 20240229
  Transmission Date: 20240409
  Serious: No
  Sender: FDA-Public Use
  Company Number: US-NOVARTISTESTPH-NVSC2022US063384

PATIENT
  Sex: Female
  Weight: 90.71 kg

DRUGS (8)
  1. COSENTYX [Suspect]
     Active Substance: SECUKINUMAB
     Indication: Psoriasis
     Dosage: UNK
     Route: 065
  2. COSENTYX [Suspect]
     Active Substance: SECUKINUMAB
     Dosage: UNK, QMO
     Route: 058
  3. TRIAMCINOLONE [Suspect]
     Active Substance: TRIAMCINOLONE
     Indication: Product used for unknown indication
     Dosage: UNK
     Route: 065
  4. OMEPRAZOLE [Suspect]
     Active Substance: OMEPRAZOLE
     Indication: Product used for unknown indication
     Dosage: UNK
     Route: 065
  5. LEVOTHYROXINE [Suspect]
     Active Substance: LEVOTHYROXINE\LEVOTHYROXINE SODIUM
     Indication: Product used for unknown indication
     Dosage: UNK
     Route: 065
  6. FLUOXETINE [Suspect]
     Active Substance: FLUOXETINE HYDROCHLORIDE
     Indication: Product used for unknown indication
     Dosage: UNK
     Route: 065
  7. LORATADINE [Suspect]
     Active Substance: LORATADINE
     Indication: Product used for unknown indication
     Dosage: UNK
     Route: 065
  8. FLUOCINOLONE [Suspect]
     Active Substance: FLUOCINOLONE
     Indication: Product used for unknown indication
     Dosage: UNK
     Route: 065

REACTIONS (23)
  - Injection site pain [Unknown]
  - Urinary incontinence [Unknown]
  - Micturition urgency [Unknown]
  - Rash [Recovered/Resolved with Sequelae]
  - Injection site urticaria [Unknown]
  - Psoriasis [Unknown]
  - Neoplasm skin [Unknown]
  - Seborrhoeic keratosis [Unknown]
  - Pyogenic granuloma [Unknown]
  - Mental disorder [Unknown]
  - Epistaxis [Unknown]
  - Skin neoplasm bleeding [Unknown]
  - Acne [Unknown]
  - Eczema [Unknown]
  - Seborrhoeic dermatitis [Unknown]
  - Arthritis [Unknown]
  - Gastrointestinal disorder [Unknown]
  - Renal disorder [Unknown]
  - Erythema [Unknown]
  - Acrochordon [Unknown]
  - Papule [Unknown]
  - Product dose omission issue [Recovered/Resolved with Sequelae]
  - Drug ineffective [Unknown]
